FAERS Safety Report 8735610 (Version 5)
Quarter: 2013Q2

REPORT INFORMATION
  Report Type: Spontaneous
  Country: US (occurrence: US)
  Receive Date: 20120822
  Receipt Date: 20130411
  Transmission Date: 20140414
  Serious: Yes (Other)
  Sender: FDA-Public Use
  Company Number: US-PFIZER INC-2012201320

PATIENT
  Age: 55 Year
  Sex: Male
  Weight: 136 kg

DRUGS (9)
  1. LYRICA [Suspect]
     Indication: NEUROPATHY PERIPHERAL
     Dosage: UNK MG, UNK
     Route: 048
     Dates: start: 2008
  2. LYRICA [Suspect]
     Dosage: 100 MG, 2X/DAY (IN THE MORNING BEFORE 8 AM AND AT NOON)
  3. METFORMIN HCL [Suspect]
     Indication: DIABETES MELLITUS
     Dosage: 500 MG, 2X/DAY
  4. HUMALOG [Suspect]
     Indication: DIABETES MELLITUS
     Dosage: 35 IU, 3X/DAY
  5. LANTUS [Suspect]
     Indication: DIABETES MELLITUS
     Dosage: 120 IU, 2X/DAY
  6. CLONAZEPAM [Concomitant]
     Indication: PAIN
     Dosage: 30 MG, 1X/DAY
  7. VENLAFAXINE [Concomitant]
     Dosage: 37.5 MG, 1X/DAY
  8. LISINOPRIL [Concomitant]
     Indication: HYPERTENSION
     Dosage: 20 MG, 1X/DAY
  9. AMLODIPINE [Concomitant]
     Indication: HYPERTENSION
     Dosage: 10 MG, 1X/DAY

REACTIONS (7)
  - Diabetes mellitus [Unknown]
  - Hearing impaired [Unknown]
  - Arthropathy [Unknown]
  - Drug ineffective [Unknown]
  - Pain [Unknown]
  - Injury [Unknown]
  - Gait disturbance [Recovered/Resolved]
